FAERS Safety Report 7750264-1 (Version None)
Quarter: 2011Q3

REPORT INFORMATION
  Report Type: 
  Country: None (occurrence: None)
  Receive Date: 20110914
  Receipt Date: 20110906
  Transmission Date: 20111222
  Serious: Yes (Other)
  Sender: FDA-Public Use
  Company Number: US-BAYER-2011-002991

PATIENT
  Age: 22 Year
  Sex: Female
  Weight: 54.422 kg

DRUGS (9)
  1. AZITHROMYCIN [Concomitant]
     Dosage: UNK
     Dates: start: 20100311
  2. LEXAPRO [Concomitant]
     Dosage: UNK
     Dates: start: 20090401, end: 20090701
  3. YAZ [Suspect]
     Indication: CONTRACEPTION
     Dosage: UNK
     Dates: start: 20070701, end: 20091201
  4. LEXAPRO [Concomitant]
     Indication: ANTIDEPRESSANT THERAPY
     Dosage: 10 MG, UNK
     Dates: start: 20090209, end: 20090309
  5. CYMBALTA [Concomitant]
     Indication: DEPRESSION
     Dosage: UNK
     Dates: start: 20090924, end: 20100423
  6. FISH OIL [Concomitant]
     Dosage: UNK
     Route: 048
     Dates: end: 20100301
  7. LEXAPRO [Concomitant]
  8. IBUPROFEN [Concomitant]
     Dosage: 800 MG, TID
     Route: 048
     Dates: end: 20100301
  9. AZITHROMYCIN [Concomitant]
     Dosage: UNK
     Dates: start: 20090708

REACTIONS (9)
  - VOMITING [None]
  - BILIARY DYSKINESIA [None]
  - ANXIETY [None]
  - ABDOMINAL PAIN UPPER [None]
  - CONSTIPATION [None]
  - NAUSEA [None]
  - BACK PAIN [None]
  - PAIN [None]
  - HEADACHE [None]
